FAERS Safety Report 7112254-1 (Version None)
Quarter: 2010Q4

REPORT INFORMATION
  Report Type: 
  Country: None (occurrence: None)
  Receive Date: 20101119
  Receipt Date: 20100607
  Transmission Date: 20110411
  Serious: No
  Sender: FDA-Public Use
  Company Number: A0857322A

PATIENT
  Age: 79 Year
  Sex: Male
  Weight: 80.5 kg

DRUGS (9)
  1. AVODART [Suspect]
     Indication: BENIGN PROSTATIC HYPERPLASIA
     Dosage: .5MG PER DAY
     Route: 048
     Dates: start: 20091011, end: 20100216
  2. ALENDRONATE SODIUM [Concomitant]
  3. CARVEDILOL [Concomitant]
  4. FLOMAX [Concomitant]
  5. WARFARIN SODIUM [Concomitant]
  6. OMEPRAZOLE [Concomitant]
  7. LIPITOR [Concomitant]
  8. VITAMIN B-12 [Concomitant]
  9. CALCIUM [Concomitant]

REACTIONS (3)
  - BREAST ENLARGEMENT [None]
  - BREAST TENDERNESS [None]
  - GYNAECOMASTIA [None]
